FAERS Safety Report 12962114 (Version 5)
Quarter: 2018Q2

REPORT INFORMATION
  Report Type: Report from Study
  Country: JP (occurrence: JP)
  Receive Date: 20161121
  Receipt Date: 20180405
  Transmission Date: 20180711
  Serious: Yes (Death, Other)
  Sender: FDA-Public Use
  Company Number: JP-GILEAD-2016-0244413

PATIENT
  Age: 60 Year
  Sex: Male

DRUGS (16)
  1. SPIRIVA [Concomitant]
     Active Substance: TIOTROPIUM BROMIDE MONOHYDRATE
     Dosage: UNK
     Dates: start: 20130904
  2. AMBRISENTAN [Suspect]
     Active Substance: AMBRISENTAN
     Indication: PRODUCT USED FOR UNKNOWN INDICATION
     Dosage: 2.5 MG, QD
     Route: 048
     Dates: start: 20130904, end: 20130910
  3. LOXONIN [Suspect]
     Active Substance: LOXOPROFEN SODIUM
     Indication: HEADACHE
     Dosage: UNK
     Route: 048
     Dates: start: 20130916, end: 20131025
  4. ONBREZ [Concomitant]
     Active Substance: INDACATEROL
     Dosage: UNK
  5. AMBRISENTAN [Suspect]
     Active Substance: AMBRISENTAN
     Dosage: 5 MG, QD
     Route: 048
     Dates: start: 20130911, end: 20131025
  6. ONBREZ [Concomitant]
     Active Substance: INDACATEROL
     Dosage: UNK
     Dates: start: 20130904
  7. SPIRIVA [Concomitant]
     Active Substance: TIOTROPIUM BROMIDE MONOHYDRATE
     Dosage: UNK
  8. HOKUNALIN  TAPE [Concomitant]
     Active Substance: TULOBUTEROL
  9. MEDICON                            /00048102/ [Concomitant]
     Active Substance: DEXTROMETHORPHAN HYDROBROMIDE
     Dosage: UNK
  10. FUROSEMIDE. [Concomitant]
     Active Substance: FUROSEMIDE
     Dosage: UNK
     Dates: start: 20131017, end: 20131112
  11. METHYCOBAL [Suspect]
     Active Substance: METHYLCOBALAMIN
     Indication: HEADACHE
     Dosage: UNK
     Route: 048
     Dates: start: 20130916, end: 20131025
  12. URINORM                            /00227201/ [Concomitant]
     Active Substance: BENZBROMARONE
  13. NEXIUM [Concomitant]
     Active Substance: ESOMEPRAZOLE MAGNESIUM
     Dosage: UNK
     Dates: start: 20131023, end: 20131112
  14. URALYT                             /01779901/ [Concomitant]
     Dosage: UNK
     Dates: end: 20130916
  15. PROCYLIN [Concomitant]
     Active Substance: BERAPROST SODIUM
     Dosage: UNK
     Dates: start: 20130921, end: 20131025
  16. FRANDOL TAPE [Concomitant]
     Active Substance: ISOSORBIDE DINITRATE
     Dosage: UNK
     Dates: start: 20131015, end: 20131112

REACTIONS (4)
  - Sudden death [Fatal]
  - Hepatic function abnormal [Recovered/Resolved]
  - Headache [Unknown]
  - Off label use [Recovered/Resolved]

NARRATIVE: CASE EVENT DATE: 20130904
